FAERS Safety Report 9928609 (Version 4)
Quarter: 2014Q2

REPORT INFORMATION
  Report Type: Spontaneous
  Country: JP (occurrence: JP)
  Receive Date: 20140227
  Receipt Date: 20140402
  Transmission Date: 20141212
  Serious: Yes (Other)
  Sender: FDA-Public Use
  Company Number: JP-PFIZER INC-2014055630

PATIENT
  Age: 28 Year
  Sex: Female
  Weight: 50 kg

DRUGS (2)
  1. JZOLOFT [Suspect]
     Indication: DEPRESSION
     Dosage: 25 MG, 1X/DAY
     Route: 048
     Dates: start: 20140217, end: 20140225
  2. PAXIL CR [Suspect]
     Dosage: 25 MG, 1X/DAY
     Route: 048
     Dates: start: 20140106, end: 20140216

REACTIONS (1)
  - Purpura [Recovered/Resolved]
